FAERS Safety Report 7219239-5 (Version None)
Quarter: 2011Q1

REPORT INFORMATION
  Report Type: 
  Country: None (occurrence: None)
  Receive Date: 20110111
  Receipt Date: 20110104
  Transmission Date: 20110831
  Serious: No
  Sender: FDA-Public Use
  Company Number: US-PFIZER INC-2011002131

PATIENT
  Sex: Female
  Weight: 63.492 kg

DRUGS (1)
  1. TOVIAZ [Suspect]
     Indication: HYPERTONIC BLADDER
     Dosage: 4 MG, 1X/DAY
     Route: 048
     Dates: start: 20101201, end: 20101201

REACTIONS (4)
  - DRY MOUTH [None]
  - HEADACHE [None]
  - FEAR [None]
  - FEELING ABNORMAL [None]
